FAERS Safety Report 9621005 (Version 1)
Quarter: 2013Q4

REPORT INFORMATION
  Report Type: Report from Study
  Country: CA (occurrence: CA)
  Receive Date: 20131015
  Receipt Date: 20131015
  Transmission Date: 20140711
  Serious: Yes (Other)
  Sender: FDA-Public Use
  Company Number: CA-JNJFOC-20131003191

PATIENT
  Sex: Male

DRUGS (1)
  1. STELERA [Suspect]
     Indication: PSORIASIS
     Dosage: 1.0 ML SYRINGE
     Route: 058
     Dates: start: 20121001

REACTIONS (1)
  - Colorectal cancer [Unknown]
